FAERS Safety Report 4450323-5 (Version None)
Quarter: 2004Q3

REPORT INFORMATION
  Report Type: 
  Country: None (occurrence: None)
  Receive Date: 20040914
  Receipt Date: 20040830
  Transmission Date: 20050211
  Serious: Yes (Death, Hospitalization)
  Sender: FDA-Public Use
  Company Number: 04P-056-0270971-00

PATIENT
  Age: 49 Year
  Sex: Male

DRUGS (5)
  1. TRICOR [Suspect]
     Dosage: 67 MG, 1 IN 1 D, PER ORAL
     Route: 048
     Dates: end: 20040705
  2. BACTRIM [Concomitant]
  3. NICARDIPINE HCL [Concomitant]
  4. TACROLIMUS [Concomitant]
  5. ESOMEPRAZOLE [Concomitant]

REACTIONS (7)
  - ANAEMIA [None]
  - CARDIAC ARREST [None]
  - CYTOMEGALOVIRUS INFECTION [None]
  - LEUKOPENIA [None]
  - SEPTIC SHOCK [None]
  - THROMBOCYTOPENIA [None]
  - TOXIC EPIDERMAL NECROLYSIS [None]
